FAERS Safety Report 10891589 (Version 3)
Quarter: 2016Q1

REPORT INFORMATION
  Report Type: Spontaneous
  Country: US (occurrence: US)
  Receive Date: 20150306
  Receipt Date: 20160225
  Transmission Date: 20160525
  Serious: Yes (Other)
  Sender: FDA-Public Use
  Company Number: US-OTSUKA-US-2015-11014

PATIENT
  Sex: Female

DRUGS (2)
  1. ABILIFY MAINTENA [Suspect]
     Active Substance: ARIPIPRAZOLE
     Dosage: UNK UNK, QM
     Route: 030
     Dates: start: 20150120
  2. ABILIFY MAINTENA [Suspect]
     Active Substance: ARIPIPRAZOLE
     Indication: PRODUCT USED FOR UNKNOWN INDICATION
     Dosage: UNK UNK, QM
     Route: 030

REACTIONS (4)
  - Mood swings [Not Recovered/Not Resolved]
  - Memory impairment [Unknown]
  - Panic attack [Unknown]
  - Imprisonment [Recovered/Resolved]
